FAERS Safety Report 6549148-6 (Version None)
Quarter: 2010Q1

REPORT INFORMATION
  Report Type: 
  Country: None (occurrence: None)
  Receive Date: 20100119
  Receipt Date: 20100119
  Transmission Date: 20100710
  Serious: Yes (Hospitalization)
  Sender: FDA-Public Use
  Company Number: 2009SA011227

PATIENT
  Age: 62 Year
  Sex: Female

DRUGS (6)
  1. FLUDARABINE PHOSPHATE [Suspect]
     Indication: CHRONIC LYMPHOCYTIC LEUKAEMIA
     Dosage: 144 MILLIGRAM(S);DAILY;ORAL
     Route: 048
     Dates: start: 20080407, end: 20090827
  2. CYCLOPHOSPHAMIDE [Suspect]
     Indication: CHRONIC LYMPHOCYTIC LEUKAEMIA
     Dosage: 9000 MILLIGRAM(S);DAILY;ORAL
     Route: 048
     Dates: start: 20080407, end: 20080827
  3. ALL OTHER THERAPEUTIC PRODUCTS [Concomitant]
  4. ENALAPRIL MALEATE [Concomitant]
  5. PINEX /DEN/ [Concomitant]
  6. PREV MEDS [Concomitant]

REACTIONS (1)
  - MALIGNANT MELANOMA [None]
